FAERS Safety Report 22173832 (Version 2)
Quarter: 2024Q3

REPORT INFORMATION
  Report Type: Spontaneous
  Country: BG (occurrence: BG)
  Receive Date: 20230404
  Receipt Date: 20240808
  Transmission Date: 20241016
  Serious: Yes (Death, Hospitalization, Other)
  Sender: TEVA
  Company Number: BG-TEVA-2023-BG-2871718

PATIENT
  Age: 85 Year
  Sex: Male

DRUGS (2)
  1. METFORMIN [Suspect]
     Active Substance: METFORMIN HYDROCHLORIDE
     Indication: Type 2 diabetes mellitus
     Dosage: TOTAL DAILY DOSE OF 2GM
     Route: 065
  2. ASPIRIN [Concomitant]
     Active Substance: ASPIRIN
     Indication: Product used for unknown indication
     Route: 065

REACTIONS (6)
  - Acute kidney injury [Fatal]
  - Toxicity to various agents [Fatal]
  - Normochromic normocytic anaemia [Unknown]
  - Acute myocardial infarction [Fatal]
  - Hyperkalaemia [Unknown]
  - Renal impairment [Unknown]
